FAERS Safety Report 10190182 (Version 1)
Quarter: 2014Q2

REPORT INFORMATION
  Report Type: Spontaneous
  Country: US (occurrence: US)
  Receive Date: 20140522
  Receipt Date: 20140522
  Transmission Date: 20141212
  Serious: No
  Sender: FDA-Public Use
  Company Number: US-009507513-2012SP036812

PATIENT
  Age: 18 Month
  Sex: Female
  Weight: 11.34 kg

DRUGS (2)
  1. CLARITIN [Suspect]
     Indication: HYPERSENSITIVITY
     Dosage: 2.5 ML, UNKNOWN
     Route: 048
  2. CLARITIN [Suspect]
     Dosage: 5 ML, ONCE
     Route: 048
     Dates: start: 20120626

REACTIONS (3)
  - Drug administered to patient of inappropriate age [Recovering/Resolving]
  - Off label use [Recovering/Resolving]
  - Overdose [Recovering/Resolving]
